FAERS Safety Report 24223895 (Version 1)
Quarter: 2024Q3

REPORT INFORMATION
  Report Type: Spontaneous
  Country: ZA (occurrence: None)
  Receive Date: 20240819
  Receipt Date: 20240819
  Transmission Date: 20241017
  Serious: Yes (Other)
  Sender: ASTRAZENECA
  Company Number: 2024A187758

PATIENT
  Age: 83 Year
  Sex: Female

DRUGS (7)
  1. DAPAGLIFLOZIN PROPANEDIOL [Suspect]
     Active Substance: DAPAGLIFLOZIN PROPANEDIOL
     Indication: Type 2 diabetes mellitus
     Dosage: 10.0MG UNKNOWN
     Route: 048
  2. BIOTECH GABAPENTIN 300 MG [Concomitant]
     Indication: Epilepsy
     Route: 048
  3. BIOTECH GABAPENTIN 300 MG [Concomitant]
     Indication: Seizure
     Route: 048
  4. BIOTECH GABAPENTIN 300 MG [Concomitant]
     Indication: Neuralgia
     Route: 048
  5. STOPAYNE [Concomitant]
     Indication: Pain
     Route: 048
  6. STOPAYNE [Concomitant]
     Indication: Osteoarthritis
     Route: 048
  7. ZILSUN MR 12.5 MG [Concomitant]
     Route: 048

REACTIONS (1)
  - Skin cancer [Unknown]
